FAERS Safety Report 11094926 (Version 1)
Quarter: 2015Q2

REPORT INFORMATION
  Report Type: Spontaneous
  Country: FR (occurrence: FR)
  Receive Date: 20150506
  Receipt Date: 20150506
  Transmission Date: 20150821
  Serious: Yes (Disabling)
  Sender: FDA-Public Use
  Company Number: FR-BAUSCH-BL-2015-012118

PATIENT
  Age: 58 Year
  Sex: Male

DRUGS (2)
  1. OFLOXACIN. [Suspect]
     Active Substance: OFLOXACIN
     Indication: FUNGAL INFECTION
     Route: 065
     Dates: start: 2002
  2. OFLOXACIN. [Suspect]
     Active Substance: OFLOXACIN
     Dates: start: 201410

REACTIONS (2)
  - Tendon pain [Recovering/Resolving]
  - Arthralgia [Recovering/Resolving]

NARRATIVE: CASE EVENT DATE: 2002
